FAERS Safety Report 11840715 (Version 1)
Quarter: 2015Q4

REPORT INFORMATION
  Report Type: Spontaneous
  Country: ES (occurrence: ES)
  Receive Date: 20151216
  Receipt Date: 20151216
  Transmission Date: 20160305
  Serious: Yes (Death)
  Sender: FDA-Public Use
  Company Number: ES-INCYTE CORPORATION-2015IN006481

PATIENT
  Age: 74 Year
  Sex: Male

DRUGS (1)
  1. JAKAFI [Suspect]
     Active Substance: RUXOLITINIB
     Indication: MYELOFIBROSIS
     Dosage: 5 MG, UNK
     Route: 048
     Dates: start: 20151104, end: 20151116

REACTIONS (2)
  - JC virus infection [Fatal]
  - Meningoencephalitis viral [Fatal]

NARRATIVE: CASE EVENT DATE: 20151114
